FAERS Safety Report 13558596 (Version 1)
Quarter: 2017Q2

REPORT INFORMATION
  Report Type: Spontaneous
  Country: US (occurrence: US)
  Receive Date: 20170518
  Receipt Date: 20170518
  Transmission Date: 20170830
  Serious: Yes (Death)
  Sender: FDA-Public Use
  Company Number: None

PATIENT
  Age: 77 Year
  Sex: Female

DRUGS (7)
  1. LONSURF [Suspect]
     Active Substance: TIPIRACIL HYDROCHLORIDE\TRIFLURIDINE
     Indication: COLON CANCER
     Route: 048
     Dates: start: 20170301, end: 20170513
  2. PHENYTOIN. [Concomitant]
     Active Substance: PHENYTOIN
  3. DULOXETINE. [Concomitant]
     Active Substance: DULOXETINE
  4. GABAPENTIN. [Concomitant]
     Active Substance: GABAPENTIN
  5. DULOXETINE. [Concomitant]
     Active Substance: DULOXETINE
  6. HYDROCHLOROT [Concomitant]
     Active Substance: HYDROCHLOROTHIAZIDE
  7. LISINOPRIL. [Concomitant]
     Active Substance: LISINOPRIL

REACTIONS (1)
  - Death [None]

NARRATIVE: CASE EVENT DATE: 20170513
